FAERS Safety Report 6368831-9 (Version None)
Quarter: 2009Q3

REPORT INFORMATION
  Report Type: 
  Country: None (occurrence: None)
  Receive Date: 20090922
  Receipt Date: 20090910
  Transmission Date: 20100115
  Serious: Yes (Other)
  Sender: FDA-Public Use
  Company Number: DE-ELI_LILLY_AND_COMPANY-DE200909002492

PATIENT
  Sex: Female

DRUGS (1)
  1. ARICLAIM [Suspect]
     Dosage: UNK, UNKNOWN
     Route: 048

REACTIONS (3)
  - ARRHYTHMIA [None]
  - HYPERHIDROSIS [None]
  - SLEEP DISORDER [None]
